FAERS Safety Report 11185278 (Version 1)
Quarter: 2015Q2

REPORT INFORMATION
  Report Type: Spontaneous
  Country: US (occurrence: US)
  Receive Date: 20150612
  Receipt Date: 20150612
  Transmission Date: 20150821
  Serious: No
  Sender: FDA-Public Use
  Company Number: US-SA-2015SA057656

PATIENT
  Age: 61 Year
  Sex: Female
  Weight: 82.5 kg

DRUGS (46)
  1. TOUJEO [Suspect]
     Active Substance: INSULIN GLARGINE
     Indication: TYPE 2 DIABETES MELLITUS
     Dosage: DOSE:125 UNIT(S)
     Route: 065
     Dates: start: 20150421, end: 20150424
  2. SOLOSTAR U300 [Concomitant]
     Dates: start: 20150421, end: 20150424
  3. HUMALOG [Concomitant]
     Active Substance: INSULIN LISPRO
     Dosage: DOSE:33 UNIT(S)
     Dates: start: 20150423, end: 20150423
  4. ALTACE [Concomitant]
     Active Substance: RAMIPRIL
  5. LANOXIN [Concomitant]
     Active Substance: DIGOXIN
     Route: 048
  6. ASPIRIN. [Concomitant]
     Active Substance: ASPIRIN
     Route: 048
  7. NITROSTAT [Concomitant]
     Active Substance: NITROGLYCERIN
  8. BENADRYL [Concomitant]
     Active Substance: DIPHENHYDRAMINE HYDROCHLORIDE
     Dosage: DOSE:1 UNIT(S)
     Route: 048
  9. COLCRYS [Concomitant]
     Active Substance: COLCHICINE
     Route: 048
  10. HUMALOG [Concomitant]
     Active Substance: INSULIN LISPRO
     Dosage: DOSE:48 UNIT(S)
     Dates: start: 20150423, end: 20150423
  11. CRESTOR [Concomitant]
     Active Substance: ROSUVASTATIN CALCIUM
     Route: 048
  12. LOVAZA [Concomitant]
     Active Substance: OMEGA-3-ACID ETHYL ESTERS
  13. LOPRESSOR [Concomitant]
     Active Substance: METOPROLOL TARTRATE
     Route: 048
  14. SPIRONOLACTONE. [Concomitant]
     Active Substance: SPIRONOLACTONE
     Route: 048
  15. FOLTX [Concomitant]
     Active Substance: CYANOCOBALAMIN CO-57\FOLIC ACID\PYRIDOXINE HYDROCHLORIDE
     Dosage: DOSE:1 UNIT(S)
     Route: 048
  16. CALTRATE [Concomitant]
     Active Substance: CALCIUM CARBONATE
  17. HUMALOG [Concomitant]
     Active Substance: INSULIN LISPRO
     Dosage: DOSE:48 UNIT(S)
     Dates: start: 20150422, end: 20150422
  18. LORATADINE. [Concomitant]
     Active Substance: LORATADINE
     Indication: HYPERSENSITIVITY
     Dosage: DAILY/ AS NEEDED
     Route: 048
  19. HUMALOG KWIKPEN [Concomitant]
     Active Substance: INSULIN LISPRO
  20. LANTUS SOLOSTAR [Suspect]
     Active Substance: INSULIN GLARGINE
     Indication: DIABETES MELLITUS
     Dosage: DOSE:135 UNIT(S)
     Route: 065
     Dates: start: 201504
  21. BYETTA [Concomitant]
     Active Substance: EXENATIDE
  22. NOVOLOG [Concomitant]
     Active Substance: INSULIN ASPART
  23. HUMALOG [Concomitant]
     Active Substance: INSULIN LISPRO
     Dosage: DOSE:30 UNIT(S)
     Dates: start: 20150422, end: 20150422
  24. VALTREX [Concomitant]
     Active Substance: VALACYCLOVIR HYDROCHLORIDE
  25. LORATADINE. [Concomitant]
     Active Substance: LORATADINE
     Indication: SINUS DISORDER
     Dosage: DAILY/ AS NEEDED
     Route: 048
  26. MECLIZINE [Concomitant]
     Active Substance: MECLIZINE\MECLIZINE HYDROCHLORIDE
     Indication: DIZZINESS
     Route: 048
  27. FLONASE [Concomitant]
     Active Substance: FLUTICASONE PROPIONATE
  28. PROTONIX [Concomitant]
     Active Substance: PANTOPRAZOLE SODIUM
     Route: 048
  29. SOLOSTAR [Concomitant]
     Active Substance: DEVICE
     Dates: start: 2012, end: 201504
  30. HUMALOG [Concomitant]
     Active Substance: INSULIN LISPRO
     Dosage: DOSE:43 UNIT(S)
     Dates: start: 20150422, end: 20150422
  31. HUMALOG [Concomitant]
     Active Substance: INSULIN LISPRO
     Dosage: DOSE:43 UNIT(S)
     Dates: start: 20150423, end: 20150423
  32. BUMEX [Concomitant]
     Active Substance: BUMETANIDE
     Route: 048
  33. VITAMIN C [Concomitant]
     Active Substance: ASCORBIC ACID
     Route: 048
  34. BENZONATATE. [Concomitant]
     Active Substance: BENZONATATE
     Indication: COUGH
     Dosage: DOSE:1 UNIT(S)
     Route: 048
  35. NIASPAN [Concomitant]
     Active Substance: NIACIN
     Route: 048
  36. PHENERGAN [Concomitant]
     Active Substance: PROMETHAZINE HYDROCHLORIDE
     Indication: NAUSEA
  37. PHENERGAN [Concomitant]
     Active Substance: PROMETHAZINE HYDROCHLORIDE
     Indication: VOMITING
  38. KWIKPEN [Concomitant]
  39. OMEPRAZOLE. [Concomitant]
     Active Substance: OMEPRAZOLE
     Route: 048
  40. SOLOSTAR [Concomitant]
     Active Substance: DEVICE
     Dates: start: 201504
  41. ZETIA [Concomitant]
     Active Substance: EZETIMIBE
     Route: 048
  42. TRILIPIX [Concomitant]
     Active Substance: FENOFIBRIC ACID
     Route: 048
  43. NYSTATIN. [Concomitant]
     Active Substance: NYSTATIN
     Dosage: DOSE: APPLY TO AFFECTED AREA 2-3 TIMES DAILY FOR 10 DAYS
  44. NASONEX [Concomitant]
     Active Substance: MOMETASONE FUROATE
     Dosage: 2 SPRAYS INTO EACH NOSTRIL ONCE DAILY
  45. LANTUS SOLOSTAR [Suspect]
     Active Substance: INSULIN GLARGINE
     Indication: DIABETES MELLITUS
     Dosage: DOSE:125 UNIT(S)
     Route: 065
     Dates: start: 2012, end: 201504
  46. ANUSOL HC [Concomitant]
     Active Substance: HYDROCORTISONE
     Dosage: APPLY TO RECTAL AREA

REACTIONS (3)
  - Blood glucose increased [Unknown]
  - Glycosylated haemoglobin increased [Unknown]
  - Blood glucose increased [Recovered/Resolved]

NARRATIVE: CASE EVENT DATE: 2015
